FAERS Safety Report 9839075 (Version 2)
Quarter: 2014Q1

REPORT INFORMATION
  Report Type: Spontaneous
  Country: IT (occurrence: IT)
  Receive Date: 20140123
  Receipt Date: 20140321
  Transmission Date: 20141002
  Serious: Yes (Life-Threatening)
  Sender: FDA-Public Use
  Company Number: PHHY2014IT005263

PATIENT
  Age: 52 Year
  Sex: Female

DRUGS (5)
  1. METFORMIN [Suspect]
     Indication: SUICIDE ATTEMPT
     Dosage: 40 MG, UNK
     Route: 048
     Dates: start: 20140102, end: 20140102
  2. MINIAS [Suspect]
     Indication: SUICIDE ATTEMPT
     Dosage: 40 DRP, UNK
     Route: 048
     Dates: start: 20140102, end: 20140102
  3. DELORAZEPAM [Suspect]
     Indication: SUICIDE ATTEMPT
     Dosage: 40 DRP, UNK
     Route: 048
     Dates: start: 20140102, end: 20140102
  4. DEURSIL [Concomitant]
  5. LUCEN [Concomitant]

REACTIONS (6)
  - Bradycardia [Recovering/Resolving]
  - Hypoglycaemia [Recovering/Resolving]
  - Hypotension [Recovering/Resolving]
  - Renal failure acute [Recovering/Resolving]
  - Suicide attempt [Recovering/Resolving]
  - Lactic acidosis [Recovering/Resolving]
